FAERS Safety Report 9803484 (Version 1)
Quarter: 2014Q1

REPORT INFORMATION
  Report Type: Spontaneous
  Country: US (occurrence: US)
  Receive Date: 20140108
  Receipt Date: 20140108
  Transmission Date: 20141002
  Serious: No
  Sender: FDA-Public Use
  Company Number: US-009507513-1401USA001824

PATIENT
  Sex: Female

DRUGS (2)
  1. INTRONA [Suspect]
     Indication: MALIGNANT MELANOMA
     Dosage: 16 MILLION IU/3 TIMES A WEEK
     Dates: start: 20131028
  2. HORMONAL CONTRACEPTIVES (UNSPECIFIED) [Concomitant]
     Indication: CONTRACEPTION

REACTIONS (2)
  - Upper-airway cough syndrome [Recovering/Resolving]
  - Product packaging quantity issue [Unknown]
